FAERS Safety Report 13957599 (Version 1)
Quarter: 2017Q3

REPORT INFORMATION
  Report Type: Spontaneous
  Country: US (occurrence: US)
  Receive Date: 20170911
  Receipt Date: 20170911
  Transmission Date: 20171128
  Serious: Yes (Other)
  Sender: FDA-Public Use
  Company Number: US-ROCHE-1130983

PATIENT
  Age: 77 Year
  Sex: Female

DRUGS (6)
  1. KYTRIL [Concomitant]
     Active Substance: GRANISETRON HYDROCHLORIDE
     Route: 065
  2. TYLENOL [Concomitant]
     Active Substance: ACETAMINOPHEN
  3. FLUDARA [Concomitant]
     Active Substance: FLUDARABINE PHOSPHATE
     Route: 065
  4. BENADRYL [Concomitant]
     Active Substance: DIPHENHYDRAMINE HYDROCHLORIDE
  5. RITUXAN [Suspect]
     Active Substance: RITUXIMAB
     Indication: CHRONIC LYMPHOCYTIC LEUKAEMIA
     Route: 065
     Dates: start: 19991130
  6. IVIG [Concomitant]
     Active Substance: HUMAN IMMUNOGLOBULIN G
     Route: 065

REACTIONS (7)
  - Dyspnoea [Unknown]
  - Hypotension [Unknown]
  - Cough [Unknown]
  - Nasal congestion [Unknown]
  - Chills [Unknown]
  - Lower respiratory tract congestion [Unknown]
  - Oedema peripheral [Unknown]

NARRATIVE: CASE EVENT DATE: 19991207
